FAERS Safety Report 11281145 (Version 1)
Quarter: 2015Q3

REPORT INFORMATION
  Report Type: Report from Study
  Country: ES (occurrence: ES)
  Receive Date: 20150717
  Receipt Date: 20150717
  Transmission Date: 20151125
  Serious: Yes (Death, Other)
  Sender: FDA-Public Use
  Company Number: ES-SA-2015SA101986

PATIENT
  Age: 80 Year
  Sex: Female

DRUGS (4)
  1. DRONEDARONE [Suspect]
     Active Substance: DRONEDARONE
     Route: 065
  2. CLORAZEPATE [Concomitant]
     Active Substance: CLORAZEPATE DIPOTASSIUM
  3. HYDROCHLOROTHIAZIDE/OLMESARTAN MEDOXOMIL [Suspect]
     Active Substance: HYDROCHLOROTHIAZIDE\OLMESARTAN MEDOXOMIL
     Route: 065
  4. ACENOCOUMAROL [Concomitant]
     Active Substance: ACENOCOUMAROL

REACTIONS (5)
  - Drug interaction [Unknown]
  - Hepatic failure [Fatal]
  - Renal failure [Fatal]
  - Blood creatinine increased [Fatal]
  - Hepatitis toxic [Fatal]
